FAERS Safety Report 23229555 (Version 1)
Quarter: 2023Q4

REPORT INFORMATION
  Report Type: Spontaneous
  Country: US (occurrence: US)
  Receive Date: 20231127
  Receipt Date: 20231127
  Transmission Date: 20240110
  Serious: No
  Sender: FDA-Public Use
  Company Number: US-PADAGIS-2023PAD01648

PATIENT

DRUGS (3)
  1. ESTRADIOL VAGINAL [Suspect]
     Active Substance: ESTRADIOL
     Indication: Atrophic vulvovaginitis
     Dosage: EVERY NIGHT FOR 2 WEEKS
     Route: 067
     Dates: start: 202306, end: 202306
  2. ESTRADIOL VAGINAL [Suspect]
     Active Substance: ESTRADIOL
     Dosage: AT NIGHT TWICE A WEEK
     Route: 067
     Dates: start: 202306, end: 202309
  3. TUMS [Concomitant]
     Active Substance: CALCIUM CARBONATE
     Indication: Dyspepsia
     Dosage: UNK, AS NEEDED
     Route: 048

REACTIONS (2)
  - Hormone level abnormal [None]
  - Prescribed underdose [Unknown]

NARRATIVE: CASE EVENT DATE: 20230901
